FAERS Safety Report 9780162 (Version 2)
Quarter: 2013Q4

REPORT INFORMATION
  Report Type: Report from Study
  Country: VE (occurrence: VE)
  Receive Date: 20131223
  Receipt Date: 20131223
  Transmission Date: 20140711
  Serious: Yes (Death, Hospitalization, Other)
  Sender: FDA-Public Use
  Company Number: VE-ABBVIE-13P-178-1038401-00

PATIENT
  Age: 70 Year
  Sex: Female
  Weight: 49 kg

DRUGS (1)
  1. HUMIRA [Suspect]
     Indication: RHEUMATOID ARTHRITIS
     Route: 058
     Dates: start: 20091027, end: 201212

REACTIONS (5)
  - Urinary tract infection [Recovered/Resolved]
  - Retinal detachment [Recovered/Resolved]
  - Arthritis [Not Recovered/Not Resolved]
  - Respiratory arrest [Fatal]
  - Abscess limb [Recovering/Resolving]
